FAERS Safety Report 6902823-3 (Version None)
Quarter: 2010Q3

REPORT INFORMATION
  Report Type: 
  Country: None (occurrence: None)
  Receive Date: 20100803
  Receipt Date: 20080825
  Transmission Date: 20110219
  Serious: No
  Sender: FDA-Public Use
  Company Number: US-PFIZER INC-2008043133

PATIENT
  Sex: Female
  Weight: 226.8 kg

DRUGS (15)
  1. LYRICA [Suspect]
     Indication: NEUROMA
     Dosage: INTERVAL: EVERY DAY
     Route: 048
  2. ANTIHYPERTENSIVES [Suspect]
  3. NEXIUM [Concomitant]
  4. TRAZODONE [Concomitant]
  5. MIDRIN [Concomitant]
  6. PROZAC [Concomitant]
  7. PRINZIDE [Concomitant]
  8. AMITRIPTYLINE HYDROCHLORIDE [Concomitant]
  9. TOPROL-XL [Concomitant]
  10. FLONASE [Concomitant]
  11. SYNTHROID [Concomitant]
  12. ZOCOR [Concomitant]
  13. NIACIN [Concomitant]
  14. MAXAIR [Concomitant]
  15. HYDROXYZINE [Concomitant]

REACTIONS (1)
  - HYPOTENSION [None]
